FAERS Safety Report 7089706-6 (Version None)
Quarter: 2010Q4

REPORT INFORMATION
  Report Type: 
  Country: None (occurrence: None)
  Receive Date: 20101108
  Receipt Date: 20100401
  Transmission Date: 20110411
  Serious: Yes (Hospitalization, Other)
  Sender: FDA-Public Use
  Company Number: US-ABBOTT-10P-163-0629627-00

PATIENT
  Sex: Male
  Weight: 88.53 kg

DRUGS (2)
  1. TRICOR [Suspect]
     Indication: BLOOD CHOLESTEROL INCREASED
     Route: 048
     Dates: start: 20100211, end: 20100220
  2. TRICOR [Suspect]
     Route: 048
     Dates: start: 20100222

REACTIONS (9)
  - CHEST DISCOMFORT [None]
  - DIZZINESS [None]
  - DYSPNOEA [None]
  - HEART RATE IRREGULAR [None]
  - HOT FLUSH [None]
  - HYPERTENSION [None]
  - NAUSEA [None]
  - OROPHARYNGEAL DISCOMFORT [None]
  - VOMITING [None]
